FAERS Safety Report 21726941 (Version 1)
Quarter: 2022Q4

REPORT INFORMATION
  Report Type: Spontaneous
  Country: US (occurrence: None)
  Receive Date: 20221213
  Receipt Date: 20221213
  Transmission Date: 20230113
  Serious: Yes (Hospitalization)
  Sender: FDA-Public Use
  Company Number: None

PATIENT
  Age: 79 Year
  Sex: Female

DRUGS (1)
  1. CAPECITABINE [Suspect]
     Active Substance: CAPECITABINE
     Indication: Colon cancer
     Dosage: OTHER QUANTITY : 2000/15000MG;?FREQUENCY : TWICE A DAY;?
     Route: 048
     Dates: start: 202210, end: 202211

REACTIONS (7)
  - Nausea [None]
  - Diarrhoea [None]
  - Alopecia [None]
  - Dehydration [None]
  - Gait inability [None]
  - Swelling [None]
  - Electrolyte imbalance [None]

NARRATIVE: CASE EVENT DATE: 20221024
